FAERS Safety Report 9905444 (Version 2)
Quarter: 2014Q1

REPORT INFORMATION
  Report Type: Spontaneous
  Country: US (occurrence: None)
  Receive Date: 20130305
  Receipt Date: 20140306
  Transmission Date: 20141002
  Serious: Yes (Other)
  Sender: FDA-Public Use
  Company Number: 163-21880-12041633

PATIENT
  Age: 63 Year
  Sex: Female
  Weight: 96.6 kg

DRUGS (5)
  1. REVLIMID [Suspect]
     Indication: PLASMA CELL MYELOMA
     Dosage: 25 MG, QD ON DAYS 1-21 OF 28 DAY CYCLE, PO
     Route: 048
     Dates: start: 20090519, end: 20100118
  2. ALDACTONE (SPIRONOLACTONE) (UNKNOWN) [Concomitant]
  3. POTASSIUM (POTASSIUM) (UNKNOWN) [Concomitant]
  4. DIOVAN (VALSARTAN) (UNKNOWN) [Concomitant]
  5. SYNTHROID (LEVOTHYROXINE SODIUM) (UNKNOWN) [Concomitant]

REACTIONS (1)
  - Deep vein thrombosis [None]
